FAERS Safety Report 5057440-X (Version None)
Quarter: 2006Q3

REPORT INFORMATION
  Report Type: 
  Country: None (occurrence: None)
  Receive Date: 20060721
  Receipt Date: 20051003
  Transmission Date: 20061208
  Serious: No
  Sender: FDA-Public Use
  Company Number: US-GLAXOSMITHKLINE-A0576696A

PATIENT
  Age: 47 Year
  Sex: Male

DRUGS (3)
  1. AVANDIA [Suspect]
     Dosage: 2MG PER DAY
     Route: 048
     Dates: start: 19990101, end: 20050801
  2. GLUCOPHAGE [Concomitant]
  3. METFORMIN [Concomitant]

REACTIONS (3)
  - FLUID RETENTION [None]
  - HEADACHE [None]
  - RHINITIS [None]
